FAERS Safety Report 7242662-X (Version None)
Quarter: 2011Q1

REPORT INFORMATION
  Report Type: 
  Country: None (occurrence: None)
  Receive Date: 20110118
  Receipt Date: 20110105
  Transmission Date: 20110831
  Serious: Yes (Death, Life-Threatening, Hospitalization, Other)
  Sender: FDA-Public Use
  Company Number: 2009AC000079

PATIENT
  Age: 29 Year
  Sex: Female
  Weight: 125 kg

DRUGS (120)
  1. DIGOXIN [Suspect]
     Dosage: 0.125 MG;QD;PO
     Route: 048
     Dates: start: 20040701, end: 20060801
  2. POTASSIUM CHLORIDE [Concomitant]
  3. COMBIVENT [Concomitant]
  4. PROTONIX [Concomitant]
  5. NATRECOR [Concomitant]
  6. ALBUTEROL [Concomitant]
  7. INSPRA [Concomitant]
  8. VASOPRESSIN [Concomitant]
  9. DILAUDID [Concomitant]
  10. ACETAMINOPHEN [Concomitant]
  11. CLONIDINE [Concomitant]
  12. DIGOXIN [Suspect]
     Dosage: 0.125 MG;QD;PO
     Route: 048
  13. DIPYRIDAMOLE [Concomitant]
  14. CARVEDILOL [Concomitant]
  15. XENICAL [Concomitant]
  16. PHENERGAN [Concomitant]
  17. DEMEROL [Concomitant]
  18. ATIVAN [Concomitant]
  19. LOVENOX [Concomitant]
  20. ISUPREL [Concomitant]
  21. EPINEPHRINE [Concomitant]
  22. LACTULOSE [Concomitant]
  23. MORPHINE [Concomitant]
  24. KLONOPIN [Concomitant]
  25. CLOMIPHENE CITRATE [Concomitant]
  26. MILRINONE [Concomitant]
  27. DIGOXIN [Suspect]
     Dosage: 0.25 MG;Q6H;PO
     Route: 048
     Dates: start: 19961009, end: 19961009
  28. ROBITUSSIN [Concomitant]
  29. ZAROXOLYN [Concomitant]
  30. METOPROLOL TARTRATE [Concomitant]
  31. ZOLPIDEM [Concomitant]
  32. KLOR-CON [Concomitant]
  33. AMIODARONE HCL [Concomitant]
  34. ZITHROMAX [Concomitant]
  35. URSODIOL [Concomitant]
  36. AMBIEN [Concomitant]
  37. VICONDIN [Concomitant]
  38. CEFEPIME [Concomitant]
  39. LEVOPHED [Concomitant]
  40. SEROQUEL [Concomitant]
  41. FENTANYL [Concomitant]
  42. VIAGRA [Concomitant]
  43. GLUTAMINE [Concomitant]
  44. ONDANSETRON [Concomitant]
  45. LIDODERM [Concomitant]
  46. MONOPRIL [Concomitant]
  47. DIGOXIN [Suspect]
     Dosage: 0.25 MG;QD;PO
     Route: 048
     Dates: start: 20070901
  48. MAG OXIDE [Concomitant]
  49. ALTACE [Concomitant]
  50. AMOXICILLIN [Concomitant]
  51. LORTAB [Concomitant]
  52. XANEX [Concomitant]
  53. INSULIN [Concomitant]
  54. PERSANTINE [Concomitant]
  55. TORSEMIDE [Concomitant]
  56. FOLIC ACID [Concomitant]
  57. ESCITALOPRAM [Concomitant]
  58. ARANESP [Concomitant]
  59. VANOMYCIN [Concomitant]
  60. PREGABALIN [Concomitant]
  61. MEDROXYPROGESTERONE [Concomitant]
  62. DIGOXIN [Suspect]
     Dosage: .25 MG;Q6H;PO
     Route: 048
     Dates: start: 19961010
  63. LASIX [Concomitant]
  64. LIPITOR [Concomitant]
  65. LISINOPRIL [Concomitant]
  66. POTASSIUM [Concomitant]
  67. MULTI-VITAMINS [Concomitant]
  68. NAPROXEN [Concomitant]
  69. HYDROCODONE BITARTRATE [Concomitant]
  70. MUCINEX [Concomitant]
  71. AUGMENTIN '125' [Concomitant]
  72. BENADRYL [Concomitant]
  73. DIGOXIN [Suspect]
     Dosage: 0.125 MG;QD;PO
     Route: 048
     Dates: start: 20080201, end: 20080901
  74. TEQUIN [Concomitant]
  75. COUMADIN [Concomitant]
  76. CLAFORAN SHOT [Concomitant]
  77. KENALOG [Concomitant]
  78. METOLAZONE [Concomitant]
  79. VICODIN [Concomitant]
  80. TOPROL-XL [Concomitant]
  81. CEFUROXIME [Concomitant]
  82. SKELAXIN [Concomitant]
  83. NITROGLYCERIN [Concomitant]
  84. HEPARIN [Concomitant]
  85. FLUOCONAZOLE [Concomitant]
  86. ZOFRAN [Concomitant]
  87. PRINIVIL [Concomitant]
  88. DIGOXIN [Suspect]
     Dosage: 0.25 MG;QD;PO
     Route: 048
     Dates: start: 19970129, end: 19970101
  89. DIGOXIN [Suspect]
     Dosage: 250 MCG;QD;PO
     Route: 048
     Dates: start: 20071001
  90. DIGOXIN [Suspect]
     Dosage: 0.25 MG;QD;PO
     Route: 048
     Dates: start: 19961010
  91. PROPA N/APAP [Concomitant]
  92. RAMIPRIL [Concomitant]
  93. MERIDIA [Concomitant]
  94. CLOMID [Concomitant]
  95. ALLEGRA [Concomitant]
  96. NESIRITIDE [Concomitant]
  97. HYDROCHLOROTHIAZIDE [Concomitant]
  98. BUMETANIDE [Concomitant]
  99. COLACE [Concomitant]
  100. BUMEX [Concomitant]
  101. K-DUR [Concomitant]
  102. SPIRONOLACTONE [Concomitant]
  103. COREG [Concomitant]
  104. KAY CIEL DURA-TABS [Concomitant]
  105. CARVEDILOL [Concomitant]
  106. METOLAZONE [Concomitant]
  107. PRIMACOR [Concomitant]
  108. ASPIRIN [Concomitant]
  109. PROVERA [Concomitant]
  110. CYCLOBENZAPRINE [Concomitant]
  111. LEVAQUIN [Concomitant]
  112. NASONEX [Concomitant]
  113. ZOFRAN [Concomitant]
  114. EPLERONONE [Concomitant]
  115. VERSED [Concomitant]
  116. VASOTEC [Concomitant]
  117. POTASSIUM [Concomitant]
  118. MAGNESIUM OXIDE [Concomitant]
  119. PROMETHAZINE W/ CODEINE [Concomitant]
  120. CATAFLAM [Concomitant]

REACTIONS (86)
  - CHEST DISCOMFORT [None]
  - FLANK PAIN [None]
  - OBESITY [None]
  - ABDOMINAL PAIN UPPER [None]
  - BLOOD GLUCOSE INCREASED [None]
  - MASS [None]
  - CEREBRAL ISCHAEMIA [None]
  - MEDIASTINITIS [None]
  - PULMONARY VALVE INCOMPETENCE [None]
  - CARDIOACTIVE DRUG LEVEL INCREASED [None]
  - ARTERIOSCLEROSIS [None]
  - DEVICE RELATED INFECTION [None]
  - MULTIPLE INJURIES [None]
  - CARDIOMEGALY [None]
  - POLYCYSTIC OVARIES [None]
  - URINARY INCONTINENCE [None]
  - UPPER RESPIRATORY TRACT INFECTION [None]
  - HYPOXIA [None]
  - BUNDLE BRANCH BLOCK LEFT [None]
  - BLOOD POTASSIUM INCREASED [None]
  - GANGRENE [None]
  - BLOOD POTASSIUM DECREASED [None]
  - NAUSEA [None]
  - SLEEP APNOEA SYNDROME [None]
  - MENSTRUATION IRREGULAR [None]
  - WOUND INFECTION [None]
  - TREATMENT NONCOMPLIANCE [None]
  - MULTI-ORGAN FAILURE [None]
  - VOMITING [None]
  - TUBERCULIN TEST POSITIVE [None]
  - RENAL CANCER [None]
  - BRONCHITIS [None]
  - INTRACARDIAC THROMBUS [None]
  - ATRIAL FIBRILLATION [None]
  - FATIGUE [None]
  - SUBDURAL HAEMORRHAGE [None]
  - SUPRAVENTRICULAR TACHYCARDIA [None]
  - RENAL FAILURE [None]
  - ELECTROCARDIOGRAM QT PROLONGED [None]
  - ELECTROCARDIOGRAM ST-T CHANGE [None]
  - ELECTROCARDIOGRAM REPOLARISATION ABNORMALITY [None]
  - PULMONARY OEDEMA [None]
  - ATELECTASIS [None]
  - ACUTE MYOCARDIAL INFARCTION [None]
  - PERIPHERAL VASCULAR DISORDER [None]
  - ECONOMIC PROBLEM [None]
  - SURGERY [None]
  - BLOOD CHOLESTEROL INCREASED [None]
  - BRAIN NATRIURETIC PEPTIDE INCREASED [None]
  - CHEST PAIN [None]
  - PLEURAL EFFUSION [None]
  - HEADACHE [None]
  - VENTRICULAR TACHYCARDIA [None]
  - INFLUENZA LIKE ILLNESS [None]
  - DYSPNOEA [None]
  - CONDITION AGGRAVATED [None]
  - HAIR GROWTH ABNORMAL [None]
  - BACK PAIN [None]
  - PALPITATIONS [None]
  - URINARY TRACT INFECTION [None]
  - SINUSITIS [None]
  - HYPERLIPIDAEMIA [None]
  - INSOMNIA [None]
  - FISTULA [None]
  - CARDIOGENIC SHOCK [None]
  - DEVICE MALFUNCTION [None]
  - LOBAR PNEUMONIA [None]
  - HYPERTENSION [None]
  - CHOLECYSTITIS [None]
  - UTERINE CANCER [None]
  - ENDOMETRIAL CANCER [None]
  - HAEMORRHAGE [None]
  - SINUS TACHYCARDIA [None]
  - DEVICE FAILURE [None]
  - STAPHYLOCOCCUS TEST POSITIVE [None]
  - ORTHOPNOEA [None]
  - PRESYNCOPE [None]
  - CARDIAC FAILURE CONGESTIVE [None]
  - INFERTILITY [None]
  - HEART TRANSPLANT [None]
  - CARDIOACTIVE DRUG LEVEL DECREASED [None]
  - ELECTROCARDIOGRAM QRS COMPLEX PROLONGED [None]
  - PERICARDIAL EFFUSION [None]
  - SUPRAVENTRICULAR EXTRASYSTOLES [None]
  - PULMONARY HYPERTENSION [None]
  - LEG AMPUTATION [None]
